FAERS Safety Report 17927122 (Version 2)
Quarter: 2020Q2

REPORT INFORMATION
  Report Type: Spontaneous
  Country: US (occurrence: US)
  Receive Date: 20200623
  Receipt Date: 20200625
  Transmission Date: 20200714
  Serious: Yes (Hospitalization)
  Sender: FDA-Public Use
  Company Number: US-GLOBAL BLOOD THERAPEUTICS INC-US-GBT-20-00541

PATIENT
  Age: 47 Year
  Sex: Female

DRUGS (1)
  1. OXBRYTA [Suspect]
     Active Substance: VOXELOTOR
     Indication: SICKLE CELL DISEASE
     Route: 048
     Dates: start: 20200320

REACTIONS (9)
  - Fatigue [Recovered/Resolved]
  - Stress [Recovered/Resolved]
  - Haemoglobin abnormal [Recovered/Resolved]
  - Feeling abnormal [Unknown]
  - Hypertension [Recovered/Resolved]
  - Decreased appetite [Unknown]
  - Bowel movement irregularity [Not Recovered/Not Resolved]
  - Hyperhidrosis [Unknown]
  - Diarrhoea [Not Recovered/Not Resolved]

NARRATIVE: CASE EVENT DATE: 202003
